FAERS Safety Report 6121987-5 (Version None)
Quarter: 2009Q1

REPORT INFORMATION
  Report Type: 
  Country: None (occurrence: None)
  Receive Date: 20090316
  Receipt Date: 20090309
  Transmission Date: 20090719
  Serious: Yes (Hospitalization)
  Sender: FDA-Public Use
  Company Number: KV200900301

PATIENT
  Age: 55 Year
  Sex: Male

DRUGS (3)
  1. MORPHINE SULFATE [Suspect]
     Indication: PAIN
     Dosage: 60 MG, TID, ORAL
     Route: 048
     Dates: end: 20080801
  2. HYDROCHLOROTHIAZIDE [Concomitant]
  3. NORTRIPTLINE [Concomitant]

REACTIONS (1)
  - RHABDOMYOLYSIS [None]
